FAERS Safety Report 8465901-6 (Version None)
Quarter: 2012Q2

REPORT INFORMATION
  Report Type: 
  Country: None (occurrence: None)
  Receive Date: 20120626
  Receipt Date: 20120621
  Transmission Date: 20120825
  Serious: Yes (Hospitalization, Other)
  Sender: FDA-Public Use
  Company Number: US-BAYER-2012-061850

PATIENT
  Age: 77 Year
  Sex: Female
  Weight: 53.968 kg

DRUGS (5)
  1. CIPROFLOXACIN HCL [Suspect]
     Indication: FOOD POISONING
     Dosage: UNKNOWN DOSE
     Dates: start: 20120401
  2. FLAGYL [Suspect]
     Indication: FOOD POISONING
     Dosage: UNKNOWN DOSE
     Route: 042
     Dates: start: 20120401, end: 20120401
  3. FLAGYL [Suspect]
     Indication: BACTERIAL INFECTION
     Dosage: UNK, TID
     Route: 048
     Dates: start: 20120508, end: 20120501
  4. LIPITOR [Concomitant]
     Indication: BLOOD CHOLESTEROL INCREASED
     Dosage: 10 MG
  5. UNSPECIFIED MEDICATION [Concomitant]
     Indication: HYPERTENSION
     Dosage: UNK

REACTIONS (6)
  - VISUAL IMPAIRMENT [None]
  - LOSS OF CONSCIOUSNESS [None]
  - UNEVALUABLE EVENT [None]
  - VOMITING [None]
  - BACTERIAL INFECTION [None]
  - COLITIS [None]
